FAERS Safety Report 10589466 (Version 1)
Quarter: 2014Q4

REPORT INFORMATION
  Report Type: Spontaneous
  Country: IT (occurrence: None)
  Receive Date: 20141114
  Receipt Date: 20141114
  Transmission Date: 20150529
  Serious: Yes (Other)
  Sender: FDA-Public Use
  Company Number: 2620440

PATIENT
  Age: 68 Year
  Sex: Female

DRUGS (1)
  1. OXALIPLATIN. [Suspect]
     Active Substance: OXALIPLATIN
     Indication: COLON CANCER
     Dosage: TOTAL, NOT OTHERWISE SPECIFIED
     Route: 042
     Dates: start: 20141029, end: 20141029

REACTIONS (3)
  - Feeling hot [None]
  - Throat tightness [None]
  - Erythema [None]

NARRATIVE: CASE EVENT DATE: 20141029
